FAERS Safety Report 10542652 (Version 1)
Quarter: 2014Q4

REPORT INFORMATION
  Report Type: Spontaneous
  Country: US (occurrence: US)
  Receive Date: 20141027
  Receipt Date: 20141027
  Transmission Date: 20150529
  Serious: No
  Sender: FDA-Public Use
  Company Number: US-BIOGENIDEC-2014BI110777

PATIENT
  Sex: Female

DRUGS (1)
  1. TYSABRI [Suspect]
     Active Substance: NATALIZUMAB
     Indication: MULTIPLE SCLEROSIS
     Route: 042
     Dates: start: 20131203

REACTIONS (7)
  - Mobility decreased [Unknown]
  - General symptom [Not Recovered/Not Resolved]
  - Urinary incontinence [Unknown]
  - Multiple sclerosis [Unknown]
  - Inflammation [Unknown]
  - Feeling of despair [Not Recovered/Not Resolved]
  - Mental impairment [Unknown]

NARRATIVE: CASE EVENT DATE: 2014
